FAERS Safety Report 11037764 (Version 1)
Quarter: 2015Q2

REPORT INFORMATION
  Report Type: Spontaneous
  Country: US (occurrence: None)
  Receive Date: 20150415
  Receipt Date: 20150415
  Transmission Date: 20150821
  Serious: Yes (Other)
  Sender: FDA-Public Use
  Company Number: None

PATIENT
  Age: 51 Year
  Sex: Female
  Weight: 78.02 kg

DRUGS (5)
  1. ADERAL [Concomitant]
  2. CIPROFLAXIN 500 MG [Suspect]
     Active Substance: CIPROFLOXACIN
     Indication: SINUSITIS
     Route: 048
     Dates: start: 20150324, end: 20150414
  3. BUPROPION [Concomitant]
     Active Substance: BUPROPION
  4. PROZAK [Concomitant]
  5. SYNTHROID [Concomitant]
     Active Substance: LEVOTHYROXINE SODIUM

REACTIONS (13)
  - Fatigue [None]
  - Nausea [None]
  - Hyperhidrosis [None]
  - Dizziness [None]
  - Disorientation [None]
  - Somnolence [None]
  - Feeling hot [None]
  - Sinus disorder [None]
  - Palpitations [None]
  - Dyspnoea [None]
  - Feeling abnormal [None]
  - Lethargy [None]
  - Disturbance in attention [None]

NARRATIVE: CASE EVENT DATE: 20150414
